FAERS Safety Report 12469720 (Version 1)
Quarter: 2016Q2

REPORT INFORMATION
  Report Type: Spontaneous
  Country: FR (occurrence: FR)
  Receive Date: 20160615
  Receipt Date: 20160615
  Transmission Date: 20160815
  Serious: Yes (Hospitalization)
  Sender: FDA-Public Use
  Company Number: FR-ASTRAZENECA-2016SE61601

PATIENT
  Age: 26821 Day
  Sex: Female

DRUGS (7)
  1. CRESTOR [Suspect]
     Active Substance: ROSUVASTATIN CALCIUM
     Indication: DYSLIPIDAEMIA
     Route: 048
     Dates: end: 20160518
  2. REPAGLINIDE. [Suspect]
     Active Substance: REPAGLINIDE
     Indication: DIABETES MELLITUS
     Route: 048
     Dates: end: 20160518
  3. DESLORATADINE. [Suspect]
     Active Substance: DESLORATADINE
     Route: 048
     Dates: end: 20160518
  4. METFORMINE [Suspect]
     Active Substance: METFORMIN HYDROCHLORIDE
     Indication: DIABETES MELLITUS
     Dosage: 1000 MG, DAILY, NON AZ DRUG
     Route: 048
     Dates: end: 20160518
  5. TELMISARTAN. [Suspect]
     Active Substance: TELMISARTAN
     Indication: HYPERTENSION
     Route: 048
     Dates: end: 20160518
  6. XELEVIA [Suspect]
     Active Substance: SITAGLIPTIN PHOSPHATE
     Indication: DIABETES MELLITUS
     Route: 048
     Dates: end: 20160518
  7. LERCANIDIPINE [Suspect]
     Active Substance: LERCANIDIPINE
     Indication: HYPERTENSION
     Route: 048
     Dates: end: 20160518

REACTIONS (11)
  - Rash maculo-papular [Recovered/Resolved]
  - Toxic skin eruption [Unknown]
  - Liver injury [Unknown]
  - Aspartate aminotransferase increased [Unknown]
  - Pyrexia [Unknown]
  - Eosinophilia [Recovering/Resolving]
  - Alanine aminotransferase increased [Unknown]
  - Hypoxia [Unknown]
  - Myalgia [Recovered/Resolved]
  - Gamma-glutamyltransferase increased [Unknown]
  - Cough [Unknown]

NARRATIVE: CASE EVENT DATE: 20160510
